FAERS Safety Report 25412129 (Version 1)
Quarter: 2025Q2

REPORT INFORMATION
  Report Type: Spontaneous
  Country: SI (occurrence: SI)
  Receive Date: 20250609
  Receipt Date: 20250609
  Transmission Date: 20250716
  Serious: Yes (Life-Threatening, Other)
  Sender: ARGENX BVBA
  Company Number: SI-ARGENX-2025-ARGX-SI007456

PATIENT

DRUGS (1)
  1. VYVGART [Suspect]
     Active Substance: EFGARTIGIMOD ALFA-FCAB
     Indication: Myasthenia gravis
     Dosage: 10 MG/KG, 1/WEEK (10 MG/KG AS A 1  HOUR INTRAVENOUS  INFUSION; IN CYCLES  OF ONCE WEEKLY INFUSIONS F
     Route: 042

REACTIONS (1)
  - Metastases to liver [Unknown]
